FAERS Safety Report 12679950 (Version 3)
Quarter: 2016Q4

REPORT INFORMATION
  Report Type: Spontaneous
  Country: US (occurrence: US)
  Receive Date: 20160824
  Receipt Date: 20161006
  Transmission Date: 20170207
  Serious: No
  Sender: FDA-Public Use
  Company Number: ALCN2016US005882

PATIENT
  Age: 62 Year
  Sex: Female
  Weight: 54.42 kg

DRUGS (2)
  1. NEO AND POLY B SULFATES + HYDROCORTISONE [Suspect]
     Active Substance: BACITRACIN\NEOMYCIN\POLYMYXIN B
     Indication: EAR INFECTION
     Dosage: 4 GTT, TID
     Route: 001
     Dates: start: 20160816, end: 20160823
  2. LEVOTHYROXINE. [Concomitant]
     Active Substance: LEVOTHYROXINE
     Indication: THYROID DISORDER
     Dosage: UNK
     Route: 065

REACTIONS (3)
  - Ear infection [Recovering/Resolving]
  - Ear congestion [Unknown]
  - Condition aggravated [Unknown]

NARRATIVE: CASE EVENT DATE: 20160816
